FAERS Safety Report 8118652-1 (Version None)
Quarter: 2012Q1

REPORT INFORMATION
  Report Type: 
  Country: None (occurrence: None)
  Receive Date: 20120207
  Receipt Date: 20120103
  Transmission Date: 20120608
  Serious: Yes (Disabling, Other)
  Sender: FDA-Public Use
  Company Number: US-BAYER-2011-046017

PATIENT
  Sex: Female
  Weight: 72.562 kg

DRUGS (11)
  1. YASMIN [Suspect]
     Indication: ACNE
     Dosage: UNK
     Route: 048
     Dates: start: 20041101, end: 20091101
  2. ALLEGRA [Concomitant]
     Indication: MULTIPLE ALLERGIES
     Dosage: UNK
     Dates: start: 20000101, end: 20090101
  3. ALBUTEROL [Concomitant]
     Indication: ASTHMA
     Dosage: UNK
     Dates: start: 20030101
  4. SYNTHROID [Concomitant]
     Indication: HYPOTHYROIDISM
     Dosage: UNK
     Dates: start: 20020101
  5. PRILOSEC [Concomitant]
     Dosage: 40 MG, UNK
     Route: 048
     Dates: start: 20091026
  6. YAZ [Suspect]
     Indication: ACNE
     Dosage: UNK
     Route: 048
     Dates: start: 20041101, end: 20091101
  7. YASMIN [Suspect]
     Indication: PREMENSTRUAL SYNDROME
  8. CLARITIN [Concomitant]
     Dosage: 1 UNK, QD
     Route: 048
     Dates: start: 20091026
  9. YAZ [Suspect]
     Indication: PREMENSTRUAL SYNDROME
  10. ALLERGY MEDICATION [Concomitant]
     Dosage: UNK
     Dates: start: 20090817
  11. MULTI-VITAMIN [Concomitant]
     Dosage: 1 UNK, QD
     Route: 048
     Dates: start: 20091026

REACTIONS (4)
  - DEFORMITY [None]
  - BILIARY DYSKINESIA [None]
  - INJURY [None]
  - PAIN [None]
